FAERS Safety Report 4960311-8 (Version None)
Quarter: 2006Q2

REPORT INFORMATION
  Report Type: 
  Country: None (occurrence: None)
  Receive Date: 20060403
  Receipt Date: 20050602
  Transmission Date: 20061013
  Serious: Yes (Other)
  Sender: FDA-Public Use
  Company Number: DEWYE714002JUN05

PATIENT
  Age: 44 Year
  Sex: Male

DRUGS (8)
  1. ENBREL [Suspect]
     Indication: RHEUMATOID ARTHRITIS
     Dosage: UNKNOWN
     Route: 058
     Dates: start: 20050301
  2. LANTAREL [Suspect]
     Indication: RHEUMATOID ARTHRITIS
     Dates: start: 20040701
  3. ARAVA [Concomitant]
     Dosage: UNKNOWN
     Route: 048
     Dates: start: 20041101, end: 20050201
  4. PREDNISOLONE [Concomitant]
     Route: 048
  5. FOLIC ACID [Concomitant]
     Route: 048
  6. CALCIUM GLUCONATE [Concomitant]
  7. COLECALCIFEROL [Concomitant]
  8. OXYCODONE [Concomitant]
     Dosage: UNKNOWN
     Route: 048
     Dates: start: 20030701

REACTIONS (1)
  - PERIODONTAL DISEASE [None]
